FAERS Safety Report 4784451-1 (Version None)
Quarter: 2005Q3

REPORT INFORMATION
  Report Type: 
  Country: None (occurrence: None)
  Receive Date: 20050929
  Receipt Date: 20050929
  Transmission Date: 20060218
  Serious: Yes (Life-Threatening, Hospitalization, Other)
  Sender: FDA-Public Use
  Company Number: None

PATIENT
  Age: 53 Year
  Sex: Male
  Weight: 72.5755 kg

DRUGS (3)
  1. VIOXX [Suspect]
     Indication: SPINAL LAMINECTOMY
     Dates: start: 20040101
  2. NEURONTIN [Suspect]
     Indication: BACK DISORDER
     Dates: start: 20050101
  3. BEXTRA [Suspect]

REACTIONS (7)
  - ACCIDENT [None]
  - BACK INJURY [None]
  - CONVULSION [None]
  - DRUG INTERACTION [None]
  - JOINT INJURY [None]
  - LIMB INJURY [None]
  - NECK INJURY [None]
